FAERS Safety Report 9387595 (Version 2)
Quarter: 2014Q3

REPORT INFORMATION
  Report Type: Spontaneous
  Country: US (occurrence: US)
  Receive Date: 20130708
  Receipt Date: 20140724
  Transmission Date: 20150326
  Serious: Yes (Hospitalization, Other)
  Sender: FDA-Public Use
  Company Number: US-009507513-1307USA001964

PATIENT
  Sex: Female
  Weight: 60.77 kg

DRUGS (1)
  1. NUVARING [Suspect]
     Active Substance: ETHINYL ESTRADIOL\ETONOGESTREL
     Dosage: UNK
     Route: 067
     Dates: start: 20080902, end: 20100721

REACTIONS (6)
  - Pulmonary infarction [Unknown]
  - Dysthymic disorder [Unknown]
  - Pulmonary embolism [Unknown]
  - Adverse event [Unknown]
  - Constipation [Unknown]
  - Malnutrition [Unknown]

NARRATIVE: CASE EVENT DATE: 20100711
